FAERS Safety Report 8912114 (Version 2)
Quarter: 2012Q4

REPORT INFORMATION
  Report Type: 
  Country: US (occurrence: US)
  Receive Date: 20121116
  Receipt Date: 20121123
  Transmission Date: 20130627
  Serious: Yes (Hospitalization, Other)
  Sender: FDA-Public Use
  Company Number: US-PFIZER INC-2012286835

PATIENT
  Age: 63 Year
  Sex: Female
  Weight: 69.84 kg

DRUGS (10)
  1. METHYLPREDNISOLONE ACETATE [Suspect]
     Dosage: UNK, once
     Route: 008
     Dates: start: 2012
  2. GABAPENTIN [Concomitant]
     Dosage: UNK
  3. PROTONIX [Concomitant]
     Dosage: UNK
  4. COLACE [Concomitant]
     Dosage: UNK
  5. FERROUS SULFATE [Concomitant]
     Dosage: UNK
  6. MEROPENEM [Concomitant]
     Dosage: UNK
  7. MAGNESIUM [Concomitant]
     Dosage: UNK
  8. LACTOBACILLUS GG [Concomitant]
     Dosage: UNK
  9. THIAMINE [Concomitant]
     Dosage: UNK
  10. AMBIEN [Concomitant]
     Dosage: UNK

REACTIONS (2)
  - Off label use [Unknown]
  - Meningitis fungal [Unknown]
